FAERS Safety Report 21689716 (Version 1)
Quarter: 2022Q4

REPORT INFORMATION
  Report Type: Report from Study
  Country: US (occurrence: US)
  Receive Date: 20221206
  Receipt Date: 20221206
  Transmission Date: 20230113
  Serious: No
  Sender: FDA-Public Use
  Company Number: US-ABBVIE-21K-163-3795321-00

PATIENT
  Age: 26 Year
  Sex: Male

DRUGS (6)
  1. HUMIRA [Suspect]
     Active Substance: ADALIMUMAB
     Indication: Crohn^s disease
     Dosage: CF
     Route: 058
     Dates: start: 201707, end: 2019
  2. HUMIRA [Suspect]
     Active Substance: ADALIMUMAB
     Dosage: CF
     Route: 058
     Dates: end: 2021
  3. HUMIRA [Suspect]
     Active Substance: ADALIMUMAB
     Dosage: CF/DAY 29
     Route: 058
     Dates: start: 20211209
  4. HUMIRA [Suspect]
     Active Substance: ADALIMUMAB
     Dosage: CF/DAY 1
     Route: 058
     Dates: start: 20211111, end: 20211111
  5. HUMIRA [Suspect]
     Active Substance: ADALIMUMAB
     Dosage: CF/DAY 15
     Route: 058
     Dates: start: 20211125, end: 20211125
  6. HUMIRA [Suspect]
     Active Substance: ADALIMUMAB
     Dosage: CF/DOSE INCREASED
     Route: 058
     Dates: start: 2022

REACTIONS (19)
  - Frequent bowel movements [Unknown]
  - Colitis [Unknown]
  - Flatulence [Not Recovered/Not Resolved]
  - Abdominal discomfort [Recovering/Resolving]
  - Gastrointestinal sounds abnormal [Not Recovered/Not Resolved]
  - Constipation [Not Recovered/Not Resolved]
  - Fatigue [Not Recovered/Not Resolved]
  - Clostridium difficile infection [Not Recovered/Not Resolved]
  - Crohn^s disease [Recovered/Resolved]
  - Abdominal distension [Not Recovered/Not Resolved]
  - Escherichia infection [Unknown]
  - Diarrhoea [Not Recovered/Not Resolved]
  - Decreased appetite [Not Recovered/Not Resolved]
  - Insomnia [Unknown]
  - Haematochezia [Not Recovered/Not Resolved]
  - Abdominal pain [Not Recovered/Not Resolved]
  - Malaise [Unknown]
  - Drug ineffective [Unknown]
  - Inflammation [Not Recovered/Not Resolved]

NARRATIVE: CASE EVENT DATE: 20190401
